FAERS Safety Report 14837883 (Version 1)
Quarter: 2018Q2

REPORT INFORMATION
  Report Type: Spontaneous
  Country: US (occurrence: US)
  Receive Date: 20180502
  Receipt Date: 20180502
  Transmission Date: 20180711
  Serious: No
  Sender: FDA-Public Use
  Company Number: US-009507513-1805USA000833

PATIENT
  Age: 23 Year
  Sex: Female
  Weight: 41.72 kg

DRUGS (1)
  1. NEXPLANON [Suspect]
     Active Substance: ETONOGESTREL
     Indication: CONTRACEPTION
     Dosage: 3 YEARS IMPLANT
     Route: 059
     Dates: start: 201607

REACTIONS (2)
  - Implant site pain [Unknown]
  - Axillary pain [Unknown]

NARRATIVE: CASE EVENT DATE: 201710
